FAERS Safety Report 10745512 (Version 1)
Quarter: 2015Q1

REPORT INFORMATION
  Report Type: Spontaneous
  Country: US (occurrence: None)
  Receive Date: 20150127
  Receipt Date: 20150127
  Transmission Date: 20150721
  Serious: No
  Sender: FDA-Public Use
  Company Number: None

PATIENT
  Age: 72 Year
  Sex: Male
  Weight: 84.5 kg

DRUGS (1)
  1. HYDROMORPHONE [Suspect]
     Active Substance: HYDROMORPHONE
     Indication: PAIN
     Route: 058
     Dates: start: 20141104, end: 20141105

REACTIONS (4)
  - Delirium [None]
  - Agitation [None]
  - Confusional state [None]
  - Hallucination, visual [None]

NARRATIVE: CASE EVENT DATE: 20141104
